FAERS Safety Report 11885304 (Version 1)
Quarter: 2016Q1

REPORT INFORMATION
  Report Type: Spontaneous
  Country: US (occurrence: US)
  Receive Date: 20160104
  Receipt Date: 20160104
  Transmission Date: 20160526
  Serious: No
  Sender: FDA-Public Use
  Company Number: US-009507513-1512USA006606

PATIENT
  Age: 30 Year
  Sex: Female

DRUGS (5)
  1. COBICISTAT (+) ELVITEGRAVIR (+) EMTRICITABINE (+) TENOFOVIR DISOPROXIL [Suspect]
     Active Substance: COBICISTAT\ELVITEGRAVIR\EMTRICITABINE\TENOFOVIR
     Dosage: TOTAL DAILY DOSE: 1
     Route: 048
  2. DARUNAVIR [Suspect]
     Active Substance: DARUNAVIR
     Dosage: TOTAL DAILY DOSE: 800
     Route: 048
  3. EMTRICITABINE (+) TENOFOVIR DISOPROXIL FUMARATE [Suspect]
     Active Substance: EMTRICITABINE\TENOFOVIR DISOPROXIL
     Dosage: TOTAL DAILY DOSE: 1
     Route: 048
  4. RALTEGRAVIR POTASSIUM [Suspect]
     Active Substance: RALTEGRAVIR POTASSIUM
     Dosage: TOTAL DAILY DOSE: 800
     Route: 048
  5. RITONAVIR. [Suspect]
     Active Substance: RITONAVIR
     Dosage: TOTAL DAILY DOSE: 100
     Route: 048

REACTIONS (1)
  - Exposure during pregnancy [Unknown]
